FAERS Safety Report 5846713-6 (Version None)
Quarter: 2008Q3

REPORT INFORMATION
  Report Type: 
  Country: None (occurrence: None)
  Receive Date: 20080815
  Receipt Date: 20080806
  Transmission Date: 20090109
  Serious: Yes (Death)
  Sender: FDA-Public Use
  Company Number: JP-ABBOTT-08P-087-0455600-00

PATIENT
  Age: 86 Year
  Sex: Male

DRUGS (5)
  1. LEUPROLIDE ACETATE [Suspect]
     Indication: PROSTATE CANCER STAGE III
     Route: 058
     Dates: start: 20060622, end: 20070815
  2. LEUPROLIDE ACETATE [Suspect]
     Route: 058
     Dates: start: 20060524
  3. BICALUTAMIDE [Concomitant]
     Indication: PROSTATE CANCER STAGE III
     Route: 048
     Dates: end: 20070923
  4. TAMSULOSIN HCL [Concomitant]
     Indication: BENIGN PROSTATIC HYPERPLASIA
     Route: 048
  5. ACETYLSALICYLIC ACID SRT [Concomitant]
     Indication: CEREBRAL INFARCTION
     Route: 048

REACTIONS (2)
  - MARASMUS [None]
  - PANCYTOPENIA [None]
